FAERS Safety Report 22178598 (Version 1)
Quarter: 2023Q2

REPORT INFORMATION
  Report Type: Spontaneous
  Country: US (occurrence: US)
  Receive Date: 20230405
  Receipt Date: 20230405
  Transmission Date: 20230721
  Serious: Yes (Hospitalization, Other)
  Sender: FDA-Public Use
  Company Number: US-FreseniusKabi-FK202304410

PATIENT
  Age: 63 Year
  Sex: Male

DRUGS (4)
  1. CISPLATIN [Suspect]
     Active Substance: CISPLATIN
     Indication: Bladder transitional cell carcinoma
     Dates: end: 202007
  2. METHOTREXATE [Concomitant]
     Active Substance: METHOTREXATE
     Indication: Bladder transitional cell carcinoma
     Dates: end: 202007
  3. VINBLASTINE [Concomitant]
     Active Substance: VINBLASTINE
     Indication: Bladder transitional cell carcinoma
     Dates: end: 202007
  4. DOXORUBICIN [Concomitant]
     Active Substance: DOXORUBICIN
     Indication: Bladder transitional cell carcinoma
     Dates: end: 202007

REACTIONS (1)
  - Renal salt-wasting syndrome [Not Recovered/Not Resolved]

NARRATIVE: CASE EVENT DATE: 20201001
